FAERS Safety Report 6411042-9 (Version None)
Quarter: 2009Q4

REPORT INFORMATION
  Report Type: 
  Country: None (occurrence: None)
  Receive Date: 20091021
  Receipt Date: 20091021
  Transmission Date: 20100525
  Serious: Yes (Hospitalization)
  Sender: FDA-Public Use
  Company Number: None

PATIENT
  Age: 84 Year
  Sex: Male

DRUGS (6)
  1. NAFCILLIN 2GM [Suspect]
     Indication: STAPHYLOCOCCAL BACTERAEMIA
     Dosage: 2GM Q4H IV
     Route: 042
     Dates: start: 20090817, end: 20090826
  2. ALBUTEROL [Concomitant]
  3. ADVAIR DISKUS 100/50 [Concomitant]
  4. METOPROLOL [Concomitant]
  5. ASPIRIN [Concomitant]
  6. CEPACOL LOZENGES [Concomitant]

REACTIONS (2)
  - PLEURAL EFFUSION [None]
  - REACTION TO DRUG EXCIPIENTS [None]
